FAERS Safety Report 15664300 (Version 1)
Quarter: 2018Q4

REPORT INFORMATION
  Report Type: Spontaneous
  Country: BE (occurrence: BE)
  Receive Date: 20181128
  Receipt Date: 20181128
  Transmission Date: 20190205
  Serious: Yes (Life-Threatening, Hospitalization, Other)
  Sender: FDA-Public Use
  Company Number: BE-ALVOGEN-2018-ALVOGEN-097837

PATIENT
  Age: 21 Year
  Sex: Female

DRUGS (1)
  1. ADALAT [Suspect]
     Active Substance: NIFEDIPINE
     Indication: PREMATURE LABOUR
     Dosage: 4 TIMES IN 1 HOUR

REACTIONS (2)
  - Off label use [Unknown]
  - Cardiogenic shock [Recovering/Resolving]
